FAERS Safety Report 4275104-7 (Version None)
Quarter: 2004Q1

REPORT INFORMATION
  Report Type: 
  Country: None (occurrence: None)
  Receive Date: 20040116
  Receipt Date: 20040105
  Transmission Date: 20041129
  Serious: Yes (Hospitalization)
  Sender: FDA-Public Use
  Company Number: K200400002

PATIENT
  Age: 45 Year
  Sex: Male

DRUGS (33)
  1. ALTACE [Suspect]
     Dosage: 5 MG, UNK; ORAL
     Route: 048
     Dates: start: 20031003, end: 20031103
  2. ASPIRIN [Suspect]
     Indication: MYOCARDIAL INFARCTION
     Dosage: 150 MG, QD; ORAL
     Route: 048
     Dates: start: 20030930
  3. STREPTOKINASE (STREPTOKINASE) SOLUTION, 1.5MG [Suspect]
     Indication: MYOCARDIAL INFARCTION
     Dosage: 1.5 MG, SINGLE; INTRAVENOUS
     Route: 042
     Dates: start: 20030930, end: 20030930
  4. ATENOLOL [Suspect]
     Dosage: 50 MG, QD; ORAL'; 25 MG, QD, OAL
     Route: 048
     Dates: start: 20031003, end: 20031103
  5. ATENOLOL [Suspect]
     Dosage: 50 MG, QD; ORAL'; 25 MG, QD, OAL
     Route: 048
     Dates: start: 20031103
  6. BLINDED STUDY DRUG [Suspect]
     Indication: MYOCARDIAL INFARCTION
     Dosage: UNK, UNK, UNK
     Route: 065
     Dates: start: 20030930, end: 20030930
  7. CEFTRIAXONE [Concomitant]
  8. METRONIDAZOLE [Concomitant]
  9. TEMAZEPAM [Concomitant]
  10. CLINDAMYCIN [Concomitant]
  11. VENTOLIN [Concomitant]
  12. CHLORVESCENT (POTASSIUM CHLORIDE) [Concomitant]
  13. AMIODARONE HCL [Concomitant]
  14. MORPHINE [Concomitant]
  15. MIDAZOLAM HCL [Concomitant]
  16. MAGNESIUM SULFATE [Concomitant]
  17. PHOSPHATE-SANDOZ (POTASSIUM BICARBONATE, SODIUM BICARBONATE, SODIUM PH [Concomitant]
  18. NORADRENALINE [Concomitant]
  19. INSULIN ACTRAPID HUMAN (INSULIN HUMAN) [Concomitant]
  20. CLOPIDOGREL [Concomitant]
  21. ASPIRIN [Concomitant]
  22. PRAVASTATIN [Concomitant]
  23. AUGMENTIN [Concomitant]
  24. ATENOLOL [Concomitant]
  25. CLEXANE (HEPARIN-FRACTION, SODIUM SALT) [Concomitant]
  26. ACETAMINOPHEN [Concomitant]
  27. MAXOLON [Concomitant]
  28. HEPARIN [Concomitant]
  29. KCL-ZYMA (POTASSIUM CHLORIDE) [Concomitant]
  30. ADRENALINE [Concomitant]
  31. LASIX [Concomitant]
  32. PROPOFOL [Concomitant]
  33. VECURONIUM [Concomitant]

REACTIONS (3)
  - CHEST PAIN [None]
  - DEEP VEIN THROMBOSIS [None]
  - MOBILITY DECREASED [None]
